FAERS Safety Report 8783141 (Version 4)
Quarter: 2014Q2

REPORT INFORMATION
  Report Type: Spontaneous
  Country: GB (occurrence: GB)
  Receive Date: 20120913
  Receipt Date: 20140411
  Transmission Date: 20141212
  Serious: Yes (Other)
  Sender: FDA-Public Use
  Company Number: GB-WATSON-2012-15988

PATIENT
  Age: 15 Year
  Sex: Female

DRUGS (4)
  1. CETIRIZINE (UNKNOWN) [Suspect]
     Indication: SEASONAL ALLERGY
     Dosage: UNK; OCCASIONAL CETIRIZINE
     Route: 048
  2. LAMICTAL [Interacting]
     Indication: BIPOLAR DISORDER
     Dosage: 50 MG, TID
     Route: 048
  3. ABILIFY [Interacting]
     Indication: BIPOLAR DISORDER
     Dosage: UNK
     Route: 065
  4. NEXPLANON [Interacting]
     Indication: CONTRACEPTION
     Dosage: UNK; NEXPLANON 68 MG IMPLANT FOR SUBDERMAL USE
     Route: 059

REACTIONS (6)
  - Abortion spontaneous [Unknown]
  - Exposure during pregnancy [Unknown]
  - Unintended pregnancy [Recovered/Resolved]
  - Metrorrhagia [Unknown]
  - Drug interaction [Unknown]
  - Pregnancy [Recovered/Resolved]
